FAERS Safety Report 10185023 (Version 2)
Quarter: 2014Q2

REPORT INFORMATION
  Report Type: Spontaneous
  Country: DE (occurrence: DE)
  Receive Date: 20140521
  Receipt Date: 20140630
  Transmission Date: 20141212
  Serious: Yes (Life-Threatening, Hospitalization)
  Sender: FDA-Public Use
  Company Number: GXKR2014DE001900

PATIENT
  Sex: 0

DRUGS (6)
  1. AMITRIPTYLIN RETARD [Suspect]
     Indication: DEPRESSION
     Dosage: 100 MG, UNK
     Route: 048
     Dates: start: 20131011, end: 20140120
  2. VENLAFAXINE [Suspect]
     Indication: DEPRESSION
     Dosage: 150 MG, UNK (START WITH 37.5 MG)
     Route: 048
     Dates: start: 20131009, end: 20140120
  3. QUETIAPINE [Suspect]
     Dosage: 50 MG, UNK
     Route: 048
     Dates: start: 20131011, end: 20140121
  4. KATADOLON S [Suspect]
     Indication: RADICULOPATHY
     Dosage: 400 MG, UNK
     Route: 048
     Dates: start: 20131011, end: 20140120
  5. PANTOZOL [Suspect]
     Indication: GASTROOESOPHAGEAL REFLUX DISEASE
     Dosage: 150 MG, UNK
     Route: 048
     Dates: start: 20131009, end: 20140120
  6. NEURO-AS [Concomitant]
     Route: 048

REACTIONS (4)
  - Hepatic enzyme increased [Recovered/Resolved]
  - General physical health deterioration [Recovered/Resolved]
  - Abdominal discomfort [Recovered/Resolved]
  - Diarrhoea [Recovered/Resolved]
